FAERS Safety Report 10556161 (Version 1)
Quarter: 2014Q4

REPORT INFORMATION
  Report Type: Spontaneous
  Country: AU (occurrence: AU)
  Receive Date: 20141031
  Receipt Date: 20141031
  Transmission Date: 20150529
  Serious: Yes (Life-Threatening)
  Sender: FDA-Public Use
  Company Number: AU-ROCHE-1483667

PATIENT
  Age: 44 Year
  Sex: Female

DRUGS (1)
  1. VALIUM [Suspect]
     Active Substance: DIAZEPAM
     Indication: BIPOLAR DISORDER
     Route: 065

REACTIONS (1)
  - Homicide [Unknown]

NARRATIVE: CASE EVENT DATE: 20141027
